FAERS Safety Report 22097177 (Version 1)
Quarter: 2023Q1

REPORT INFORMATION
  Report Type: Spontaneous
  Country: PK (occurrence: PK)
  Receive Date: 20230315
  Receipt Date: 20230315
  Transmission Date: 20230418
  Serious: Yes (Death, Hospitalization, Other)
  Sender: FDA-Public Use
  Company Number: PK-AMGEN-PAKSP2023040930

PATIENT
  Age: 23 Year
  Sex: Female

DRUGS (7)
  1. FILGRASTIM [Suspect]
     Active Substance: FILGRASTIM
     Indication: Product used for unknown indication
     Dosage: 300 MICROGRAM, QD
     Route: 065
  2. LANSOPRAZOLE [Concomitant]
     Active Substance: LANSOPRAZOLE
     Dosage: 40 MILLIGRAM, QD
  3. DIMENHYDRINATE [Concomitant]
     Active Substance: DIMENHYDRINATE
  4. MITOMYCIN C [Concomitant]
     Active Substance: MITOMYCIN
  5. TAZOBACTAM [Concomitant]
     Active Substance: TAZOBACTAM
  6. PIPERACILLIN [Concomitant]
     Active Substance: PIPERACILLIN
     Dosage: 4.5 GRAM
  7. AMPHOTERICIN B [Concomitant]
     Active Substance: AMPHOTERICIN B
     Dosage: 60 MILLIGRAM, QD

REACTIONS (4)
  - Immunodeficiency [Fatal]
  - Superinfection fungal [Fatal]
  - Hepatitis viral [Fatal]
  - Aplastic anaemia [Fatal]
